FAERS Safety Report 7353743-4 (Version None)
Quarter: 2011Q1

REPORT INFORMATION
  Report Type: 
  Country: None (occurrence: None)
  Receive Date: 20110315
  Receipt Date: 20110309
  Transmission Date: 20110831
  Serious: Yes (Hospitalization, Other)
  Sender: FDA-Public Use
  Company Number: SE-PFIZER INC-2011040224

PATIENT
  Age: 17 Year
  Sex: Male
  Weight: 94 kg

DRUGS (1)
  1. SOMATROPIN [Suspect]
     Indication: GROWTH HORMONE DEFICIENCY
     Dosage: 1 MG, 1X/DAY
     Dates: start: 20010627

REACTIONS (1)
  - THROMBOCYTOPENIA [None]
